FAERS Safety Report 14639319 (Version 1)
Quarter: 2018Q1

REPORT INFORMATION
  Report Type: Spontaneous
  Country: US (occurrence: US)
  Receive Date: 20180315
  Receipt Date: 20180315
  Transmission Date: 20180509
  Serious: No
  Sender: FDA-Public Use
  Company Number: US-ENDO PHARMACEUTICALS INC-2017-005327

PATIENT
  Sex: Female

DRUGS (3)
  1. ISOSORBIDE DINITRATE. [Suspect]
     Active Substance: ISOSORBIDE DINITRATE
     Indication: CARDIAC DISORDER
     Dosage: 1 DF, OD
     Route: 048
     Dates: start: 201707, end: 201707
  2. ISOSORBIDE DINITRATE. [Suspect]
     Active Substance: ISOSORBIDE DINITRATE
     Dosage: 1 DF, OD
     Route: 048
     Dates: start: 201709, end: 201709
  3. UNSPECIFIED MEDICATION [Concomitant]
     Active Substance: UNSPECIFIED INGREDIENT
     Indication: CARDIAC DISORDER

REACTIONS (2)
  - Feeling abnormal [Unknown]
  - Throat irritation [Unknown]

NARRATIVE: CASE EVENT DATE: 201707
